FAERS Safety Report 11637596 (Version 4)
Quarter: 2016Q1

REPORT INFORMATION
  Report Type: Spontaneous
  Country: CH (occurrence: CH)
  Receive Date: 20151016
  Receipt Date: 20160124
  Transmission Date: 20160525
  Serious: Yes (Other)
  Sender: FDA-Public Use
  Company Number: CH-AMGEN-CHESP2015107208

PATIENT
  Age: 53 Year
  Sex: Female

DRUGS (4)
  1. EXEMESTANE. [Concomitant]
     Active Substance: EXEMESTANE
     Indication: BREAST CANCER
     Dosage: UNK
     Route: 048
     Dates: start: 2010, end: 201504
  2. VITAMIN D3 STREULI [Concomitant]
     Indication: PROPHYLAXIS
     Dosage: 2 ML, QWK
     Dates: start: 20150225
  3. PROLIA [Suspect]
     Active Substance: DENOSUMAB
     Indication: PROPHYLAXIS
     Dosage: 60 MG, Q6MO
     Route: 058
     Dates: start: 20120201, end: 20140815
  4. CALCIUM [Concomitant]
     Active Substance: CALCIUM
     Dosage: UNK
     Dates: start: 201202

REACTIONS (9)
  - Multiple fractures [Recovered/Resolved with Sequelae]
  - Bone density decreased [Unknown]
  - Blood alkaline phosphatase increased [Unknown]
  - Rebound effect [Unknown]
  - Back pain [Unknown]
  - Fall [Unknown]
  - Thoracic vertebral fracture [Recovered/Resolved with Sequelae]
  - Bone marrow oedema [Recovered/Resolved with Sequelae]
  - Lumbar vertebral fracture [Recovered/Resolved with Sequelae]

NARRATIVE: CASE EVENT DATE: 20150515
